FAERS Safety Report 10208681 (Version 1)
Quarter: 2014Q2

REPORT INFORMATION
  Report Type: Spontaneous
  Country: US (occurrence: None)
  Receive Date: 20140528
  Receipt Date: 20140528
  Transmission Date: 20141212
  Serious: No
  Sender: FDA-Public Use
  Company Number: None

PATIENT
  Age: 75 Year
  Sex: Male

DRUGS (8)
  1. CAPECITABINE [Suspect]
     Indication: COLON CANCER
     Route: 048
     Dates: start: 20140510
  2. CAPECITABINE [Suspect]
     Indication: HEPATIC CANCER
     Route: 048
     Dates: start: 20140510
  3. XELODA 500 MG GENENTECH [Suspect]
     Route: 048
     Dates: start: 20140316, end: 20140509
  4. POTASSIUM CHLORIDE [Concomitant]
  5. HYDROCHLOROTHIAZIDE [Concomitant]
  6. SENNA [Concomitant]
  7. XARELTO [Concomitant]
  8. AMLODIPINE [Concomitant]

REACTIONS (2)
  - Paraesthesia [None]
  - Erythema [None]
